FAERS Safety Report 4768398-2 (Version None)
Quarter: 2005Q3

REPORT INFORMATION
  Report Type: 
  Country: None (occurrence: None)
  Receive Date: 20050906
  Receipt Date: 20050511
  Transmission Date: 20060218
  Serious: No
  Sender: FDA-Public Use
  Company Number: 2005-BP-05155BP

PATIENT
  Sex: Female
  Weight: 61.8 kg

DRUGS (7)
  1. SPIRIVA [Suspect]
     Indication: CHRONIC OBSTRUCTIVE PULMONARY DISEASE
     Dosage: 18 MCG (18 MCG, QD), IH
     Route: 055
     Dates: start: 20050125, end: 20050327
  2. THEOPHYLLINE [Concomitant]
  3. ASPIRIN [Concomitant]
  4. COMBIVENT [Concomitant]
  5. UNIPHYL [Concomitant]
  6. HYDROCHLOROTHIAZIDE [Concomitant]
  7. ADVAIR DISKUS 100/50 [Concomitant]

REACTIONS (4)
  - CONJUNCTIVITIS ALLERGIC [None]
  - EYELID MARGIN CRUSTING [None]
  - LACRIMATION INCREASED [None]
  - OCULAR HYPERAEMIA [None]
